FAERS Safety Report 7425522-0 (Version None)
Quarter: 2011Q2

REPORT INFORMATION
  Report Type: 
  Country: None (occurrence: None)
  Receive Date: 20110418
  Receipt Date: 20110418
  Transmission Date: 20111010
  Serious: Yes (Other)
  Sender: FDA-Public Use
  Company Number: None

PATIENT
  Age: 64 Year
  Sex: Female
  Weight: 70.3075 kg

DRUGS (2)
  1. AMPYRA [Suspect]
     Indication: MULTIPLE SCLEROSIS
     Dosage: 10 MG EVERY 12 HOURS PO
     Route: 048
     Dates: start: 20100726, end: 20110120
  2. AMPYRA [Suspect]
     Indication: ABASIA
     Dosage: 10 MG EVERY 12 HOURS PO
     Route: 048
     Dates: start: 20100726, end: 20110120

REACTIONS (7)
  - MUSCULOSKELETAL STIFFNESS [None]
  - MUSCLE TWITCHING [None]
  - CHILLS [None]
  - SPEECH DISORDER [None]
  - GASTROINTESTINAL INFECTION [None]
  - DYSTONIA [None]
  - CONVULSION [None]
